FAERS Safety Report 18162090 (Version 2)
Quarter: 2021Q2

REPORT INFORMATION
  Report Type: Spontaneous
  Country: FR (occurrence: FR)
  Receive Date: 20200818
  Receipt Date: 20210609
  Transmission Date: 20210717
  Serious: Yes (Other)
  Sender: FDA-Public Use
  Company Number: FR-LUPIN PHARMACEUTICALS INC.-2020-04808

PATIENT
  Age: 50 Year
  Sex: Female

DRUGS (2)
  1. NANOCOLL [Concomitant]
     Indication: RADIOISOTOPE SCAN
     Dosage: 37 MEGABECQUEREL UNK
     Route: 059
  2. DESLORATADINE. [Suspect]
     Active Substance: DESLORATADINE
     Indication: ANAPHYLACTIC SHOCK
     Dosage: 5 MILLIGRAM UNK
     Route: 048

REACTIONS (2)
  - Off label use [Unknown]
  - Drug ineffective for unapproved indication [Unknown]
